FAERS Safety Report 20627455 (Version 1)
Quarter: 2022Q1

REPORT INFORMATION
  Report Type: Spontaneous
  Country: US (occurrence: None)
  Receive Date: 20220323
  Receipt Date: 20220323
  Transmission Date: 20220423
  Serious: Yes (Hospitalization)
  Sender: FDA-Public Use
  Company Number: None

PATIENT
  Age: 69 Year
  Sex: Male

DRUGS (1)
  1. DROXIDOPA [Suspect]
     Active Substance: DROXIDOPA
     Indication: Orthostatic hypotension
     Dosage: 100MG THREE TIMES DAILY ORAL?
     Route: 048
     Dates: start: 202202

REACTIONS (2)
  - Septic shock [None]
  - Pyrexia [None]

NARRATIVE: CASE EVENT DATE: 20220319
